FAERS Safety Report 13598748 (Version 5)
Quarter: 2017Q3

REPORT INFORMATION
  Report Type: Report from Study
  Country: US (occurrence: US)
  Receive Date: 20170531
  Receipt Date: 20170906
  Transmission Date: 20171127
  Serious: Yes (Other)
  Sender: FDA-Public Use
  Company Number: US-BAYER-2017-092473

PATIENT
  Age: 63 Year
  Sex: Female

DRUGS (2)
  1. STIVARGA [Suspect]
     Active Substance: REGORAFENIB
     Indication: COLON CANCER
     Dosage: 160 MG DAILY FOR 21 DAYS ON 7 DAYS OFF
     Route: 048
     Dates: start: 20170508
  2. STIVARGA [Suspect]
     Active Substance: REGORAFENIB
     Indication: COLON CANCER
     Dosage: 160 MG DAILY FOR 21 DAYS ON 7 DAYS OFF
     Route: 048
     Dates: start: 20170417, end: 2017

REACTIONS (17)
  - Blood pressure increased [Recovering/Resolving]
  - Skin exfoliation [Not Recovered/Not Resolved]
  - Gingival swelling [Recovered/Resolved]
  - Skin papilloma [Recovering/Resolving]
  - Blood pressure systolic increased [Recovered/Resolved]
  - Viral infection [None]
  - Fatigue [Unknown]
  - Pain in extremity [Recovering/Resolving]
  - Oral discomfort [Unknown]
  - Feeling jittery [Recovered/Resolved]
  - Discomfort [None]
  - Pain in extremity [Unknown]
  - Diarrhoea [Not Recovered/Not Resolved]
  - Dysphagia [Recovered/Resolved]
  - Temperature intolerance [Recovered/Resolved]
  - Odynophagia [Recovered/Resolved]
  - Gingival pain [None]

NARRATIVE: CASE EVENT DATE: 2017
